FAERS Safety Report 9505588 (Version 1)
Quarter: 2013Q1

REPORT INFORMATION
  Report Type: Spontaneous
  Country: US (occurrence: None)
  Receive Date: 20130225
  Receipt Date: 20130225
  Transmission Date: 20140127
  Serious: No
  Sender: FDA-Public Use
  Company Number: 369589

PATIENT
  Age: 56 Year
  Sex: Female

DRUGS (1)
  1. VICTOZA (LIRAGLUTIDE) SOLUTION FOR INJECTION, 6MG/ML [Suspect]
     Route: 058
     Dates: start: 20130110, end: 20130116

REACTIONS (3)
  - Gastrooesophageal reflux disease [None]
  - Vomiting [None]
  - Headache [None]
